FAERS Safety Report 21758276 (Version 1)
Quarter: 2022Q4

REPORT INFORMATION
  Report Type: Report from Study
  Country: NL (occurrence: NL)
  Receive Date: 20221221
  Receipt Date: 20221221
  Transmission Date: 20230112
  Serious: Yes (Other)
  Sender: FDA-Public Use
  Company Number: NL-SUN PHARMACEUTICAL INDUSTRIES LTD-2022RR-369430

PATIENT
  Age: 62 Year
  Sex: Male

DRUGS (8)
  1. OXALIPLATIN [Suspect]
     Active Substance: OXALIPLATIN
     Indication: Colorectal cancer
     Dosage: 130 MILLIGRAM/SQ. METER, ON DAY 1 IN 3-WEEK CYCLE
     Route: 042
  2. IRINOTECAN [Suspect]
     Active Substance: IRINOTECAN
     Indication: Colorectal cancer
     Dosage: 180 MILLIGRAM/SQ. METER, ON DAY 1 , EVERY 2 WEEKS
     Route: 065
  3. CAPECITABINE [Suspect]
     Active Substance: CAPECITABINE
     Indication: Colorectal cancer
     Dosage: 1000 MILLIGRAM/SQ. METER, BID, DAYS 1 TO 14 IN 3-WEEK CYCLE
     Route: 048
  4. CAPECITABINE [Suspect]
     Active Substance: CAPECITABINE
     Dosage: 750 MILLIGRAM/SQ. METER, BID, DAYS 1 TO 14 IN 3-WEEK CYCLE
     Route: 048
  5. CAPECITABINE [Suspect]
     Active Substance: CAPECITABINE
     Dosage: 500 MILLIGRAM/SQ. METER, BID, DAYS 1 TO 14 IN 3-WEEK CYCLE
     Route: 048
  6. LEUCOVORIN CALCIUM [Suspect]
     Active Substance: LEUCOVORIN CALCIUM
     Indication: Colorectal cancer
     Dosage: 400 MILLIGRAM/SQ. METER, ON DAY 1 EVERY 2 WEEKS
     Route: 065
  7. FLUOROURACIL [Suspect]
     Active Substance: FLUOROURACIL
     Indication: Colorectal cancer
     Dosage: 2400 MILLIGRAM/SQ. , EVERY 2 WEEKS
     Route: 065
  8. BEVACIZUMAB [Suspect]
     Active Substance: BEVACIZUMAB
     Indication: Colorectal cancer
     Dosage: 5 MILLIGRAM/SQ. METER, ON DAY 1, EVERY 2 WEEKS
     Route: 065

REACTIONS (4)
  - Gastrointestinal toxicity [Recovered/Resolved]
  - Metastases to peritoneum [Unknown]
  - Disease progression [Unknown]
  - Infection [Unknown]
